FAERS Safety Report 8007703-0 (Version None)
Quarter: 2011Q4

REPORT INFORMATION
  Report Type: 
  Country: None (occurrence: None)
  Receive Date: 20111227
  Receipt Date: 20110413
  Transmission Date: 20120403
  Serious: Yes (Hospitalization, Other)
  Sender: FDA-Public Use
  Company Number: US-ABBOTT-10P-163-0686271-00

PATIENT
  Sex: Male
  Weight: 75.364 kg

DRUGS (8)
  1. ZOMETA [Concomitant]
     Indication: PRODUCT USED FOR UNKNOWN INDICATION
  2. LUPRON DEPOT [Suspect]
     Indication: PROSTATE CANCER
  3. CRESTOR [Concomitant]
     Indication: PRODUCT USED FOR UNKNOWN INDICATION
  4. VITAMIN D [Concomitant]
     Indication: VITAMIN SUPPLEMENTATION
  5. ASPIRIN [Concomitant]
     Indication: PRODUCT USED FOR UNKNOWN INDICATION
  6. PROCRIT [Concomitant]
     Indication: PRODUCT USED FOR UNKNOWN INDICATION
  7. FISH OIL [Concomitant]
     Indication: PRODUCT USED FOR UNKNOWN INDICATION
  8. MULTI-VITAMIN [Concomitant]
     Indication: VITAMIN SUPPLEMENTATION

REACTIONS (12)
  - BLOOD CORTISOL INCREASED [None]
  - HYPOTENSION [None]
  - PROSTATE CANCER METASTATIC [None]
  - THROMBOCYTOPENIA [None]
  - HAEMOPTYSIS [None]
  - ANAEMIA [None]
  - PRODUCTIVE COUGH [None]
  - PRESYNCOPE [None]
  - COLD SWEAT [None]
  - PALLOR [None]
  - ASTHENIA [None]
  - HYPERHIDROSIS [None]
